FAERS Safety Report 18781066 (Version 1)
Quarter: 2021Q1

REPORT INFORMATION
  Report Type: Spontaneous
  Country: US (occurrence: US)
  Receive Date: 20210122
  Receipt Date: 20210122
  Transmission Date: 20210419
  Serious: No
  Sender: FDA-Public Use
  Company Number: None

PATIENT
  Sex: Female

DRUGS (4)
  1. LEVOPHED [Concomitant]
     Active Substance: NOREPINEPHRINE BITARTRATE
  2. VALTREX [Concomitant]
     Active Substance: VALACYCLOVIR HYDROCHLORIDE
  3. 3 LITERS IVF [Concomitant]
  4. TAZEMETOSTAT 800MG BID [Suspect]
     Active Substance: TAZEMETOSTAT
     Indication: BLADDER CANCER
     Dates: start: 20201222, end: 20201225

REACTIONS (11)
  - Haematuria [None]
  - Acute kidney injury [None]
  - Leukocytosis [None]
  - Herpes simplex test positive [None]
  - Pyelonephritis [None]
  - Hypophagia [None]
  - Fatigue [None]
  - Sepsis [None]
  - Bacteraemia [None]
  - Hydronephrosis [None]
  - Oral herpes [None]

NARRATIVE: CASE EVENT DATE: 20201227
